FAERS Safety Report 12481052 (Version 1)
Quarter: 2016Q2

REPORT INFORMATION
  Report Type: Spontaneous
  Country: US (occurrence: US)
  Receive Date: 20160620
  Receipt Date: 20160620
  Transmission Date: 20160815
  Serious: No
  Sender: FDA-Public Use
  Company Number: US-MEDA-2016060035

PATIENT
  Age: 73 Year
  Sex: Female
  Weight: 62 kg

DRUGS (4)
  1. TORSEMIDE. [Suspect]
     Active Substance: TORSEMIDE
  2. TORSEMIDE. [Suspect]
     Active Substance: TORSEMIDE
     Dates: start: 20160512
  3. REMODULIN [Suspect]
     Active Substance: TREPROSTINIL
     Indication: PULMONARY HYPERTENSION
     Dosage: 0.01 MCG/KG
     Route: 041
     Dates: start: 20160426
  4. ADEMPAS [Concomitant]
     Active Substance: RIOCIGUAT

REACTIONS (3)
  - Nausea [Unknown]
  - Dizziness [Unknown]
  - Weight decreased [Unknown]

NARRATIVE: CASE EVENT DATE: 201605
